FAERS Safety Report 25325192 (Version 1)
Quarter: 2025Q2

REPORT INFORMATION
  Report Type: Spontaneous
  Country: US (occurrence: US)
  Receive Date: 20250516
  Receipt Date: 20250516
  Transmission Date: 20250717
  Serious: Yes (Other)
  Sender: PURDUE
  Company Number: US-PURDUE PHARMA-USA-2025-0317432

PATIENT
  Sex: Male

DRUGS (35)
  1. OXYCONTIN [Suspect]
     Active Substance: OXYCODONE HYDROCHLORIDE
     Indication: Pain
     Dosage: 30 MG, 1 TABLET, Q12H
     Route: 048
  2. OXYCONTIN [Suspect]
     Active Substance: OXYCODONE HYDROCHLORIDE
     Route: 048
  3. OXYCONTIN [Suspect]
     Active Substance: OXYCODONE HYDROCHLORIDE
     Route: 048
  4. OXYCONTIN [Suspect]
     Active Substance: OXYCODONE HYDROCHLORIDE
     Route: 048
  5. OXYCODONE HYDROCHLORIDE [Suspect]
     Active Substance: OXYCODONE HYDROCHLORIDE
     Indication: Pain
     Route: 048
  6. OXYCODONE HYDROCHLORIDE [Suspect]
     Active Substance: OXYCODONE HYDROCHLORIDE
     Indication: Pain
     Route: 048
  7. OXYCODONE HYDROCHLORIDE [Suspect]
     Active Substance: OXYCODONE HYDROCHLORIDE
     Route: 048
  8. OXYCODONE HYDROCHLORIDE [Suspect]
     Active Substance: OXYCODONE HYDROCHLORIDE
     Route: 048
  9. OXYCODONE HYDROCHLORIDE [Suspect]
     Active Substance: OXYCODONE HYDROCHLORIDE
     Indication: Pain
     Route: 065
  10. OXYCODONE HYDROCHLORIDE [Suspect]
     Active Substance: OXYCODONE HYDROCHLORIDE
     Route: 065
  11. HYDROCODONE BITARTRATE AND ACETAMINOPHEN [Suspect]
     Active Substance: ACETAMINOPHEN\HYDROCODONE BITARTRATE
     Indication: Pain
     Route: 048
  12. TRAMADOL [Suspect]
     Active Substance: TRAMADOL
     Indication: Pain
     Route: 048
  13. FENTANYL [Suspect]
     Active Substance: FENTANYL
     Indication: Pain
     Route: 062
  14. FENTANYL [Suspect]
     Active Substance: FENTANYL
     Route: 062
  15. FENTANYL [Suspect]
     Active Substance: FENTANYL
     Route: 062
  16. FENTANYL [Suspect]
     Active Substance: FENTANYL
     Route: 062
  17. FENTANYL [Suspect]
     Active Substance: FENTANYL
     Route: 062
  18. AMITRIPTYLINE [Suspect]
     Active Substance: AMITRIPTYLINE
     Indication: Insomnia
     Route: 048
  19. AMITRIPTYLINE [Suspect]
     Active Substance: AMITRIPTYLINE
     Route: 048
  20. AMITRIPTYLINE [Suspect]
     Active Substance: AMITRIPTYLINE
     Route: 048
  21. TRAZODONE [Suspect]
     Active Substance: TRAZODONE HYDROCHLORIDE
     Indication: Insomnia
     Route: 048
  22. TRAZODONE [Suspect]
     Active Substance: TRAZODONE HYDROCHLORIDE
     Route: 048
  23. LYRICA [Suspect]
     Active Substance: PREGABALIN
     Indication: Neuralgia
     Route: 065
  24. LYRICA [Suspect]
     Active Substance: PREGABALIN
     Route: 065
  25. GABAPENTIN [Suspect]
     Active Substance: GABAPENTIN
     Indication: Neuralgia
     Route: 048
  26. GABAPENTIN [Suspect]
     Active Substance: GABAPENTIN
     Dosage: 300 MILLIGRAM, QID (TAKE 3 CAPSULES BY MOUTH 4 TIMES A DAY)
     Route: 048
  27. GABAPENTIN [Suspect]
     Active Substance: GABAPENTIN
     Route: 048
  28. LISINOPRIL [Suspect]
     Active Substance: LISINOPRIL
     Indication: Hypertension
     Dosage: 20 MG, 1 TABLET, DAILY (TAKE I TABLET (20 MG TOTAL) BY MOUTH EVERYDAY FOR BLOOD PRESSURE CONTROL AND
     Route: 048
  29. LISINOPRIL [Suspect]
     Active Substance: LISINOPRIL
     Dosage: 10 MILLIGRAM, DAILY
     Route: 048
  30. LISINOPRIL [Suspect]
     Active Substance: LISINOPRIL
     Dosage: 10 MILLIGRAM, DAILY (TAKE 1 TABLET (10 MG TOTAL) BY MOUTH EVERY DAY -- DECREASED DUE TO HYPERKALEMIA
     Route: 048
  31. CYMBALTA [Suspect]
     Active Substance: DULOXETINE HYDROCHLORIDE
     Indication: Depression
     Dosage: 30 MILLIGRAM, 1 CAPSL, DAILY, DAILY
     Route: 048
  32. CYMBALTA [Suspect]
     Active Substance: DULOXETINE HYDROCHLORIDE
     Indication: Feeling of despair
     Route: 048
  33. DIAZEPAM [Suspect]
     Active Substance: DIAZEPAM
     Indication: Anxiety
     Route: 048
  34. DIAZEPAM [Suspect]
     Active Substance: DIAZEPAM
     Dosage: 1 TABLET, DAILY, PRN
     Route: 048
  35. DIAZEPAM [Suspect]
     Active Substance: DIAZEPAM
     Dosage: TAKE 1 TABLET BY MOUTH TWICE A DAY
     Route: 048

REACTIONS (20)
  - Intestinal obstruction [Unknown]
  - Impaired driving ability [Unknown]
  - Drug dependence [Unknown]
  - Gastrointestinal disorder [Unknown]
  - Tooth infection [Unknown]
  - Impaired quality of life [Unknown]
  - Impaired work ability [Unknown]
  - Drug tolerance increased [Unknown]
  - Feeling of despair [Unknown]
  - Illness [Unknown]
  - Hypertension [Unknown]
  - Weight decreased [Unknown]
  - Stupor [Unknown]
  - Erythema [Unknown]
  - Depression [Unknown]
  - Abdominal pain [Unknown]
  - Diarrhoea [Unknown]
  - Somnolence [Unknown]
  - Drug withdrawal syndrome [Unknown]
  - Drug ineffective [Unknown]
